FAERS Safety Report 5291154-6 (Version None)
Quarter: 2007Q2

REPORT INFORMATION
  Report Type: 
  Country: None (occurrence: None)
  Receive Date: 20070409
  Receipt Date: 20070404
  Transmission Date: 20071010
  Serious: Yes (Death, Hospitalization, Other)
  Sender: FDA-Public Use
  Company Number: JP-ELI_LILLY_AND_COMPANY-JP200611005077

PATIENT
  Age: 29 Year
  Sex: Female
  Weight: 41.7 kg

DRUGS (3)
  1. GEMCITABINE HCL [Suspect]
     Indication: BILE DUCT CANCER STAGE IV
     Dosage: 1400 MG, OTHER
     Route: 042
     Dates: start: 20060919, end: 20061114
  2. ZOFRAN [Concomitant]
     Indication: PROPHYLAXIS
     Dosage: 4 MG, OTHER
     Route: 042
     Dates: start: 20060919, end: 20061114
  3. TS 1 [Concomitant]
     Indication: BILE DUCT CANCER STAGE IV
     Dosage: 100 MG, DAILY (1/D)
     Route: 048
     Dates: start: 20061209, end: 20070103

REACTIONS (3)
  - CEREBRAL INFARCTION [None]
  - DEATH [None]
  - DISSEMINATED INTRAVASCULAR COAGULATION [None]
